FAERS Safety Report 8999314 (Version 3)
Quarter: 2013Q1

REPORT INFORMATION
  Report Type: Spontaneous
  Country: JP (occurrence: JP)
  Receive Date: 20130103
  Receipt Date: 20130211
  Transmission Date: 20140127
  Serious: Yes (Other)
  Sender: FDA-Public Use
  Company Number: JP-PFIZER INC-2012331543

PATIENT
  Age: 32 Year
  Sex: Female

DRUGS (2)
  1. PREMARIN [Suspect]
     Indication: PROPHYLAXIS OF ABORTION
     Dosage: 1.25 MG, 2X/DAY
     Route: 048
  2. LUTORAL [Concomitant]
     Indication: PROPHYLAXIS OF ABORTION
     Dosage: 2 MG, 2X/DAY
     Route: 048

REACTIONS (2)
  - Haemorrhage in pregnancy [Recovered/Resolved]
  - Off label use [Unknown]
